FAERS Safety Report 12594760 (Version 2)
Quarter: 2016Q3

REPORT INFORMATION
  Report Type: Spontaneous
  Country: US (occurrence: US)
  Receive Date: 20160726
  Receipt Date: 20160912
  Transmission Date: 20161109
  Serious: Yes (Hospitalization, Other)
  Sender: FDA-Public Use
  Company Number: US-ELI_LILLY_AND_COMPANY-US201607005518

PATIENT
  Age: 50 Year
  Sex: Male
  Weight: 82.46 kg

DRUGS (13)
  1. OXYCONTIN [Concomitant]
     Active Substance: OXYCODONE HYDROCHLORIDE
     Indication: PAIN
     Dosage: 15 MG, PRN
     Route: 048
  2. CATAPRES                           /00171101/ [Concomitant]
     Active Substance: CLONIDINE
     Dosage: 0.1 MG, BID
     Route: 048
  3. PERCOCET                           /00446701/ [Concomitant]
     Active Substance: ACETAMINOPHEN\OXYCODONE HYDROCHLORIDE\OXYCODONE TEREPHTHALATE
     Dosage: 1 DF, PRN
     Route: 048
  4. LANTUS [Concomitant]
     Active Substance: INSULIN GLARGINE
     Dosage: 60 U, BID
     Route: 065
  5. COREG [Concomitant]
     Active Substance: CARVEDILOL
     Dosage: 12.5 MG, BID
     Route: 048
  6. NEURONTIN [Concomitant]
     Active Substance: GABAPENTIN
     Dosage: 300 MG, QD
     Route: 048
  7. PROTONIX                           /00661201/ [Concomitant]
     Active Substance: OMEPRAZOLE
     Dosage: 40 MG, BID
     Route: 048
  8. ALEVE [Suspect]
     Active Substance: NAPROXEN SODIUM
     Indication: PRODUCT USED FOR UNKNOWN INDICATION
     Dosage: UNK, UNKNOWN
     Route: 065
  9. PRINIVIL [Concomitant]
     Active Substance: LISINOPRIL
     Dosage: 20 MG, BID
     Route: 048
  10. DEPO TESTOSTERONE [Suspect]
     Active Substance: TESTOSTERONE
     Indication: PRODUCT USED FOR UNKNOWN INDICATION
     Dosage: UNK, UNKNOWN
     Route: 030
  11. HUMALOG [Suspect]
     Active Substance: INSULIN LISPRO
     Indication: TYPE 2 DIABETES MELLITUS
     Dosage: UNK, UNKNOWN
     Route: 058
     Dates: start: 1998
  12. APIDRA [Concomitant]
     Active Substance: INSULIN GLULISINE
     Dosage: 40 U, AFTER DINNER
     Route: 058
  13. ZOCOR [Concomitant]
     Active Substance: SIMVASTATIN
     Dosage: 40 MG, QD
     Route: 048

REACTIONS (17)
  - Carcinoid tumour of the small bowel [Unknown]
  - Gastric haemorrhage [Unknown]
  - Diabetic ketoacidosis [Recovered/Resolved]
  - Abdominal distension [Unknown]
  - Renal hypertension [Unknown]
  - Vomiting [Unknown]
  - Malaise [Unknown]
  - Anaemia [Unknown]
  - Dehydration [Recovering/Resolving]
  - Hypogonadism [Unknown]
  - Drug dose omission [Unknown]
  - Hypophagia [Unknown]
  - Renal failure [Recovering/Resolving]
  - Intestinal polyp [Unknown]
  - Pancreatitis acute [Recovered/Resolved]
  - Ileal ulcer [Unknown]
  - Diabetes mellitus inadequate control [Unknown]

NARRATIVE: CASE EVENT DATE: 201503
